FAERS Safety Report 19802677 (Version 1)
Quarter: 2021Q3

REPORT INFORMATION
  Report Type: Spontaneous
  Country: US (occurrence: US)
  Receive Date: 20210903
  Receipt Date: 20210903
  Transmission Date: 20211014
  Serious: Yes (Hospitalization)
  Sender: FDA-Public Use
  Company Number: None

PATIENT
  Age: 61 Year
  Sex: Male
  Weight: 121 kg

DRUGS (1)
  1. LENALIDOMIDE (CC?5013) [Suspect]
     Active Substance: LENALIDOMIDE
     Dates: start: 20210110, end: 20210701

REACTIONS (7)
  - Fatigue [None]
  - Fibrosis [None]
  - Vomiting [None]
  - Myelodysplastic syndrome [None]
  - Thrombocytopenia [None]
  - Asthenia [None]
  - Leukopenia [None]

NARRATIVE: CASE EVENT DATE: 20210805
